FAERS Safety Report 9060228 (Version 1)
Quarter: 2013Q1

REPORT INFORMATION
  Report Type: Spontaneous
  Country: US (occurrence: None)
  Receive Date: 20130118
  Receipt Date: 20130118
  Transmission Date: 20140127
  Serious: Yes (Death)
  Sender: FDA-Public Use
  Company Number: AUR-APL-2013-00473

PATIENT
  Age: 55 Year
  Sex: Male

DRUGS (9)
  1. GABAPENTIN (GABAPENTIN) [Suspect]
     Indication: PRODUCT USED FOR UNKNOWN INDICATION
  2. AMITRIPTYLINE (AMITRIPTYLINE) [Suspect]
     Indication: PRODUCT USED FOR UNKNOWN INDICATION
     Dosage: ORAL
     Route: 048
  3. MODAFINIL [Suspect]
     Indication: PRODUCT USED FOR UNKNOWN INDICATION
  4. TAMSULOSIN [Suspect]
     Indication: PRODUCT USED FOR UNKNOWN INDICATION
  5. TIZANIDINE [Suspect]
     Indication: PRODUCT USED FOR UNKNOWN INDICATION
  6. ETHANOL [Suspect]
     Indication: PRODUCT USED FOR UNKNOWN INDICATION
  7. CLONAZEPAM (CLONAZEPAM) (CLONAZEPAM) [Suspect]
     Indication: PRODUCT USED FOR UNKNOWN INDICATION
  8. NATALIZUMAB [Suspect]
     Indication: PRODUCT USED FOR UNKNOWN INDICATION
  9. ATORVASTATIN (ATORVASTATIN) [Suspect]
     Indication: PRODUCT USED FOR UNKNOWN INDICATION

REACTIONS (2)
  - Toxicity to various agents [None]
  - Completed suicide [None]
